FAERS Safety Report 8780286 (Version 1)
Quarter: 2012Q4

REPORT INFORMATION
  Report Type: Spontaneous
  Country: US (occurrence: None)
  Receive Date: 20120905
  Receipt Date: 20120905
  Transmission Date: 20130627
  Serious: Yes (Life-Threatening, Hospitalization)
  Sender: FDA-Public Use
  Company Number: None

PATIENT
  Age: 78 Year
  Sex: Female
  Weight: 52.16 kg

DRUGS (1)
  1. SIMVASTATIN [Suspect]
     Dosage: 10 mg 1 daily at Bed Time
     Dates: start: 20120224, end: 20120301

REACTIONS (1)
  - No adverse event [None]
